FAERS Safety Report 4612734-4 (Version None)
Quarter: 2005Q1

REPORT INFORMATION
  Report Type: 
  Country: None (occurrence: None)
  Receive Date: 20050318
  Receipt Date: 20050314
  Transmission Date: 20050727
  Serious: Yes (Other)
  Sender: FDA-Public Use
  Company Number: US-MERCK-0503USA02321

PATIENT

DRUGS (2)
  1. SINGULAIR [Suspect]
     Route: 048
  2. ADVAIR DISKUS 100/50 [Suspect]
     Route: 065

REACTIONS (1)
  - MENTAL DISORDER [None]
